FAERS Safety Report 14241697 (Version 3)
Quarter: 2017Q4

REPORT INFORMATION
  Report Type: Report from Study
  Country: US (occurrence: US)
  Receive Date: 20171201
  Receipt Date: 20171227
  Transmission Date: 20180321
  Serious: Yes (Life-Threatening, Hospitalization)
  Sender: FDA-Public Use
  Company Number: US-ROCHE-2028336

PATIENT
  Age: 61 Year
  Sex: Male
  Weight: 51 kg

DRUGS (8)
  1. CARBOPLATIN. [Suspect]
     Active Substance: CARBOPLATIN
     Dosage: DAY22 CYCLE 1 10MG/ML
     Route: 042
     Dates: start: 20171127
  2. PACLITAXEL. [Suspect]
     Active Substance: PACLITAXEL
     Indication: NON-SMALL CELL LUNG CANCER
     Dosage: 6 MG/ML
     Route: 042
     Dates: start: 20171106
  3. CARBOPLATIN. [Suspect]
     Active Substance: CARBOPLATIN
     Indication: NON-SMALL CELL LUNG CANCER
     Dosage: 10MG/ML
     Route: 042
     Dates: start: 20171106
  4. CARBOPLATIN. [Suspect]
     Active Substance: CARBOPLATIN
     Dosage: DAY8 CYCLE 1 10MG/ML
     Route: 042
     Dates: start: 20171113
  5. ATEZOLIZUMAB. [Suspect]
     Active Substance: ATEZOLIZUMAB
     Dosage: 60MG/ML DAY 22 CYCLE 1
     Route: 042
     Dates: start: 20171127
  6. ATEZOLIZUMAB. [Suspect]
     Active Substance: ATEZOLIZUMAB
     Indication: NON-SMALL CELL LUNG CANCER
     Dosage: 60 MG/ML DAY 1 CYCLE 1
     Route: 042
     Dates: start: 20171106
  7. PACLITAXEL. [Suspect]
     Active Substance: PACLITAXEL
     Dosage: DAY8 CYCLE 1
     Route: 042
     Dates: start: 20171113
  8. PACLITAXEL. [Suspect]
     Active Substance: PACLITAXEL
     Dosage: DAY22 CYCLE 1
     Route: 042
     Dates: start: 20171127

REACTIONS (3)
  - Respiratory failure [Unknown]
  - Wheezing [Unknown]
  - Dyspnoea [Unknown]

NARRATIVE: CASE EVENT DATE: 20171114
